FAERS Safety Report 7931515-7 (Version None)
Quarter: 2011Q4

REPORT INFORMATION
  Report Type: 
  Country: None (occurrence: None)
  Receive Date: 20111121
  Receipt Date: 20111121
  Transmission Date: 20120403
  Serious: Yes (Other)
  Sender: FDA-Public Use
  Company Number: None

PATIENT
  Age: 39 Year
  Sex: Female
  Weight: 71.214 kg

DRUGS (3)
  1. NEOSPORIN [Suspect]
     Indication: BLISTER
     Dosage: PEA-SIZE OR SMALLER
     Route: 061
     Dates: start: 20110917, end: 20111111
  2. NEOSPORIN [Suspect]
     Indication: LACERATION
     Dosage: PEA-SIZE OR SMALLER
     Route: 061
     Dates: start: 20110917, end: 20111111
  3. NEOSPORIN [Suspect]
     Indication: SCRATCH
     Dosage: PEA-SIZE OR SMALLER
     Route: 061
     Dates: start: 20110917, end: 20111111

REACTIONS (17)
  - SWELLING [None]
  - APPLICATION SITE PRURITUS [None]
  - PARAESTHESIA ORAL [None]
  - SWOLLEN TONGUE [None]
  - APPLICATION SITE VESICLES [None]
  - TREMOR [None]
  - THROAT TIGHTNESS [None]
  - ERYTHEMA [None]
  - CHILLS [None]
  - VOMITING [None]
  - OEDEMA PERIPHERAL [None]
  - DYSPNOEA [None]
  - ABDOMINAL PAIN [None]
  - NAUSEA [None]
  - PRURITUS GENERALISED [None]
  - DIARRHOEA [None]
  - PRODUCT QUALITY ISSUE [None]
